FAERS Safety Report 5793485-X (Version None)
Quarter: 2008Q2

REPORT INFORMATION
  Report Type: 
  Country: None (occurrence: None)
  Receive Date: 20080627
  Receipt Date: 20080619
  Transmission Date: 20081010
  Serious: Yes (Hospitalization)
  Sender: FDA-Public Use
  Company Number: CH-PURDUE-GBR_2008_0004151

PATIENT
  Age: 60 Year
  Sex: Male

DRUGS (4)
  1. MST CONTINUS TABLETS 10 MG [Suspect]
     Indication: PAIN
     Dosage: 10 MG, Q12H
     Route: 048
     Dates: start: 20050228, end: 20050313
  2. MST CONTINUS TABLETS 10 MG [Suspect]
     Dosage: 30 MG, Q12H
     Route: 048
     Dates: start: 20050228, end: 20050313
  3. IRINOTECAN HCL [Suspect]
     Indication: NON-SMALL CELL LUNG CANCER
     Dosage: 125 MG, UNK
     Route: 042
     Dates: start: 20050309
  4. CISPLATIN [Suspect]
     Indication: NON-SMALL CELL LUNG CANCER
     Dosage: 125 MG, UNK
     Route: 042
     Dates: start: 20050309

REACTIONS (2)
  - HYPONATRAEMIA [None]
  - MENTAL DISORDER [None]
